FAERS Safety Report 8991471 (Version 2)
Quarter: 2013Q1

REPORT INFORMATION
  Report Type: Spontaneous
  Country: US (occurrence: US)
  Receive Date: 20121231
  Receipt Date: 20130121
  Transmission Date: 20140127
  Serious: Yes (Death, Hospitalization, Other)
  Sender: FDA-Public Use
  Company Number: US-BIOGENIDEC-2012BI063901

PATIENT
  Age: 65 Year
  Sex: Male

DRUGS (23)
  1. TYSABRI [Suspect]
     Indication: MULTIPLE SCLEROSIS
     Route: 042
     Dates: start: 20101230, end: 20121114
  2. PHENYTOIN [Concomitant]
     Route: 048
  3. AVODART [Concomitant]
     Route: 048
  4. ASA [Concomitant]
     Route: 048
  5. METOPROLOL TARTRATE [Concomitant]
     Route: 048
  6. ZINC 220 [Concomitant]
     Route: 048
  7. CITALOPRAM [Concomitant]
     Route: 048
  8. ACTONEL [Concomitant]
     Route: 048
  9. VITAMIN D3 [Concomitant]
     Route: 048
  10. CLEARLAX [Concomitant]
  11. DOCUSATE [Concomitant]
     Route: 048
  12. MULTIVITAMIN [Concomitant]
     Route: 048
  13. VITAMIN C [Concomitant]
  14. VITAMIN B COMPLEX [Concomitant]
  15. CALTRATE [Concomitant]
  16. MELATONIN [Concomitant]
  17. OXYGEN [Concomitant]
  18. ADCIRCA [Concomitant]
     Indication: PULMONARY HYPERTENSION
     Route: 048
  19. LIPITOR [Concomitant]
  20. SYNTHROID [Concomitant]
  21. TAMSULOSIN [Concomitant]
  22. LETAIRIS [Concomitant]
     Indication: PULMONARY HYPERTENSION
     Route: 048
  23. VIMPAT [Concomitant]

REACTIONS (12)
  - Cardiac arrest [Unknown]
  - Lactic acidosis [Unknown]
  - Confusional state [Unknown]
  - Renal failure acute [Unknown]
  - Dehydration [Unknown]
  - Fall [Recovered/Resolved]
  - Rib fracture [Unknown]
  - Contusion [Unknown]
  - Acute respiratory failure [Unknown]
  - Septic shock [Unknown]
  - Pneumonia [Fatal]
  - Convulsion [Unknown]
